FAERS Safety Report 17455206 (Version 1)
Quarter: 2020Q1

REPORT INFORMATION
  Report Type: Spontaneous
  Country: US (occurrence: US)
  Receive Date: 20200225
  Receipt Date: 20200225
  Transmission Date: 20200409
  Serious: Yes (Other)
  Sender: FDA-Public Use
  Company Number: US-ROCHE-2556789

PATIENT
  Sex: Female
  Weight: 65.83 kg

DRUGS (1)
  1. CELLCEPT [Suspect]
     Active Substance: MYCOPHENOLATE MOFETIL\MYCOPHENOLATE MOFETIL HYDROCHLORIDE
     Indication: RENAL TRANSPLANT
     Dosage: ONGOING:YES
     Route: 048
     Dates: start: 2001

REACTIONS (5)
  - Gangrene [Recovered/Resolved]
  - Fall [Unknown]
  - Blood count abnormal [Not Recovered/Not Resolved]
  - Foot fracture [Unknown]
  - Herpes virus infection [Not Recovered/Not Resolved]
